FAERS Safety Report 4877487-3 (Version None)
Quarter: 2006Q1

REPORT INFORMATION
  Report Type: 
  Country: None (occurrence: None)
  Receive Date: 20060109
  Receipt Date: 20060104
  Transmission Date: 20060701
  Serious: No
  Sender: FDA-Public Use
  Company Number: TAP2006Q00009

PATIENT
  Age: 88 Year
  Sex: Female

DRUGS (2)
  1. NAPRAPAC 375 (COPACKAGED) [Suspect]
     Indication: ARTHRITIS
     Dosage: 1 CARD, 1 IN 1 WK, PER ORAL
     Route: 048
     Dates: start: 20051224, end: 20060104
  2. UNSPECIFIED BLOOD PRESSURE MEDICATION (HYPERTENSIVES) [Concomitant]

REACTIONS (2)
  - OEDEMA PERIPHERAL [None]
  - VISION BLURRED [None]
